FAERS Safety Report 4708123-4 (Version None)
Quarter: 2005Q3

REPORT INFORMATION
  Report Type: 
  Country: None (occurrence: None)
  Receive Date: 20050707
  Receipt Date: 20050627
  Transmission Date: 20060218
  Serious: Yes (Other)
  Sender: FDA-Public Use
  Company Number: 2005AP03549

PATIENT
  Age: 67 Year
  Sex: Female

DRUGS (2)
  1. ARIMIDEX [Suspect]
     Indication: BREAST CANCER STAGE I
     Route: 048
     Dates: start: 20040801, end: 20050301
  2. RADIATION THERAPY [Concomitant]
     Dates: start: 20040801, end: 20040901

REACTIONS (1)
  - CRYPTOGENIC ORGANIZING PNEUMONIA [None]
